FAERS Safety Report 21799636 (Version 1)
Quarter: 2022Q4

REPORT INFORMATION
  Report Type: Spontaneous
  Country: US (occurrence: US)
  Receive Date: 20221230
  Receipt Date: 20221230
  Transmission Date: 20230112
  Serious: No
  Sender: FDA-Public Use
  Company Number: US-drreddys-SPO/USA/22/0158468

PATIENT
  Age: 76 Year
  Sex: Female

DRUGS (11)
  1. LENALIDOMIDE [Suspect]
     Active Substance: LENALIDOMIDE
     Indication: Plasma cell myeloma
     Dosage: TAKE 1 CAPSULE WHOLE BY MOUTH WITH WATER AT THE SAME TIME EACH DAY ON DAYS 1-21 OF EACH 28 DAY CYCLE
     Route: 048
  2. GABAPENTIN TAB 800MG [Concomitant]
     Indication: Product used for unknown indication
  3. VELCADE SOL 3.5MG [Concomitant]
     Indication: Product used for unknown indication
  4. DOCUSATE SODIUM [Concomitant]
     Active Substance: DOCUSATE SODIUM
     Indication: Product used for unknown indication
  5. FUROSEMIDE [Concomitant]
     Active Substance: FUROSEMIDE
     Indication: Product used for unknown indication
  6. ASPIRIN [Concomitant]
     Active Substance: ASPIRIN
     Indication: Product used for unknown indication
  7. DEXAMETHASON TAB 6MG [Concomitant]
     Indication: Product used for unknown indication
  8. IRON TAB 28MG [Concomitant]
     Indication: Product used for unknown indication
  9. LEVEMIR SOL 100UNIT/ML [Concomitant]
     Indication: Product used for unknown indication
     Dosage: 100UNIT/ML
  10. NOVOLOG SOL 100UNIT/ML [Concomitant]
     Indication: Product used for unknown indication
     Dosage: 100UNIT/ML
  11. ROSUVASTATIN [Concomitant]
     Active Substance: ROSUVASTATIN
     Indication: Product used for unknown indication

REACTIONS (1)
  - Product dose omission issue [Unknown]
